FAERS Safety Report 18537987 (Version 2)
Quarter: 2021Q1

REPORT INFORMATION
  Report Type: Report from Study
  Country: None (occurrence: US)
  Receive Date: 20201124
  Receipt Date: 20210207
  Transmission Date: 20210419
  Serious: Yes (Hospitalization, Other)
  Sender: FDA-Public Use
  Company Number: US-ABBVIE-20K-163-3657686-00

PATIENT
  Sex: Male

DRUGS (3)
  1. HUMIRA [Suspect]
     Active Substance: ADALIMUMAB
     Indication: CROHN^S DISEASE
     Route: 058
     Dates: start: 20200724, end: 20200908
  2. MELATONIN [Concomitant]
     Active Substance: MELATONIN
     Indication: INSOMNIA
  3. HUMIRA [Suspect]
     Active Substance: ADALIMUMAB
     Route: 058
     Dates: start: 20201103

REACTIONS (12)
  - Disturbance in attention [Recovered/Resolved]
  - Abdominal pain upper [Unknown]
  - Procedural pain [Unknown]
  - Abdominal adhesions [Unknown]
  - Post procedural complication [Unknown]
  - Foreign body in gastrointestinal tract [Unknown]
  - Musculoskeletal stiffness [Unknown]
  - Gingival swelling [Unknown]
  - Memory impairment [Recovered/Resolved]
  - Procedural vomiting [Unknown]
  - Bacterial infection [Unknown]
  - Decreased appetite [Recovering/Resolving]

NARRATIVE: CASE EVENT DATE: 2020
